FAERS Safety Report 11176978 (Version 1)
Quarter: 2015Q2

REPORT INFORMATION
  Report Type: Spontaneous
  Country: ES (occurrence: None)
  Receive Date: 20150608
  Receipt Date: 20150608
  Transmission Date: 20150821
  Serious: Yes (Other)
  Sender: FDA-Public Use
  Company Number: BTG00258

PATIENT
  Sex: Female

DRUGS (10)
  1. ENALAPRIL (ENALAPRIL MALEATE) [Concomitant]
  2. ENOXAPARIN (ENOXAPARIN SODIUM) [Concomitant]
  3. FILGRASTIM [Concomitant]
     Active Substance: FILGRASTIM
  4. FOLATE (FOLIC ACID) [Concomitant]
  5. VORAXAZE [Suspect]
     Active Substance: GLUCARPIDASE
     Indication: OVERDOSE
  6. METHOTREXATE (METHOTREXATE SODIUM) [Suspect]
     Active Substance: METHOTREXATE SODIUM
     Indication: CHEMOTHERAPY
  7. ALOPURINOL [Concomitant]
     Active Substance: ALLOPURINOL
  8. COTRIMOXAZOL (SULFAMETHOXAZOLE, TRIMETHOPRIM) [Concomitant]
  9. ACYCLOVIR (ACICLOVIR SODIUM) [Concomitant]
  10. CIPROFLOXACIN (CIPROFLOXACIN HYDROCHLORIDE) [Concomitant]

REACTIONS (1)
  - Drug effect incomplete [None]
